FAERS Safety Report 10689321 (Version 1)
Quarter: 2015Q1

REPORT INFORMATION
  Report Type: Spontaneous
  Country: US (occurrence: US)
  Receive Date: 20150105
  Receipt Date: 20150105
  Transmission Date: 20150720
  Serious: Yes (Hospitalization)
  Sender: FDA-Public Use
  Company Number: US-JNJCP-30000257650

PATIENT
  Sex: Female

DRUGS (1)
  1. ROC MULTI CORREXION 5 IN 1 PERFECTING SUNSCREEN BROAD SPECTRUM SPF 25 [Suspect]
     Active Substance: OCTINOXATE\OCTISALATE\TITANIUM DIOXIDE
     Indication: PRODUCT USED FOR UNKNOWN INDICATION
     Route: 061

REACTIONS (1)
  - Adverse event [Unknown]
